FAERS Safety Report 25863243 (Version 2)
Quarter: 2025Q4

REPORT INFORMATION
  Report Type: Report from Study
  Country: US (occurrence: US)
  Receive Date: 20250930
  Receipt Date: 20251013
  Transmission Date: 20260118
  Serious: Yes (Hospitalization)
  Sender: GILEAD
  Company Number: US-GILEAD-2025-0730313

PATIENT
  Age: 64 Year
  Sex: Female

DRUGS (2)
  1. TENOFOVIR ALAFENAMIDE [Suspect]
     Active Substance: TENOFOVIR ALAFENAMIDE
     Indication: Hepatitis C
     Dosage: 25 MG
     Route: 065
  2. TENOFOVIR ALAFENAMIDE [Suspect]
     Active Substance: TENOFOVIR ALAFENAMIDE
     Indication: Neoplasm prophylaxis

REACTIONS (3)
  - Depression [Unknown]
  - Product use in unapproved indication [Not Recovered/Not Resolved]
  - Product use issue [Unknown]
